FAERS Safety Report 8729474 (Version 2)
Quarter: 2012Q4

REPORT INFORMATION
  Report Type: 
  Country: US (occurrence: US)
  Receive Date: 20120817
  Receipt Date: 20120906
  Transmission Date: 20130627
  Serious: Yes (Other)
  Sender: FDA-Public Use
  Company Number: US-PFIZER INC-2012197824

PATIENT
  Age: 63 Year
  Sex: Female
  Weight: 71 kg

DRUGS (12)
  1. GABAPENTIN [Suspect]
     Indication: PAIN IN EXTREMITY
     Dosage: 1500 mg, 1x/day (2x300 morning, 1x300 afteroon, 2x300night
     Route: 048
     Dates: start: 201112
  2. GABAPENTIN [Suspect]
     Indication: MUSCULOSKELETAL DISORDER
     Dosage: UNK
     Route: 048
  3. GABAPENTIN [Suspect]
     Indication: MUSCULOSKELETAL DISORDER
  4. GABAPENTIN [Suspect]
     Indication: NEUROPATHY PERIPHERAL
  5. HYDROCODONE [Concomitant]
     Dosage: UNK
  6. TRAMADOL [Concomitant]
     Dosage: UNK
  7. FUROSEMIDE [Concomitant]
     Indication: CARDIAC FAILURE CONGESTIVE
     Dosage: UNK
  8. ISOSORBIDE DINITRATE [Concomitant]
     Indication: CARDIAC FAILURE CONGESTIVE
     Dosage: UNK
  9. CLONAZEPAM [Concomitant]
     Indication: RESTLESS LEGS SYNDROME
     Dosage: UNK
  10. POTASSIUM [Concomitant]
     Dosage: UNK
  11. VITAMIN B12 [Concomitant]
     Indication: VITAMIN B12 DEFICIENCY
     Dosage: UNK, 2x/month
  12. XANAX [Concomitant]
     Dosage: UNK, as needed

REACTIONS (7)
  - Rheumatoid arthritis [Unknown]
  - Grip strength decreased [Unknown]
  - Gout [Unknown]
  - Blood uric acid increased [Unknown]
  - Paraesthesia [Unknown]
  - Sinus congestion [Unknown]
  - Drug ineffective [Unknown]
